FAERS Safety Report 7989036 (Version 4)
Quarter: 2012Q4

REPORT INFORMATION
  Report Type: 
  Country: FR (occurrence: FR)
  Receive Date: 20110613
  Receipt Date: 20121212
  Transmission Date: 20130627
  Serious: Yes (Hospitalization, Other)
  Sender: FDA-Public Use
  Company Number: FR-MERCK-1106FRA00039

PATIENT
  Age: 55 Year
  Sex: Male

DRUGS (7)
  1. SINGULAIR [Suspect]
     Indication: ASTHMA
     Dosage: 10 mg, qd
     Route: 048
     Dates: start: 20110613
  2. SINGULAIR [Suspect]
     Dosage: 10 mg, qd
     Route: 048
     Dates: end: 20110609
  3. FLECAINE [Concomitant]
     Dosage: 100 mg, qd
     Route: 048
  4. VERAPAMIL [Concomitant]
     Dosage: 240 mg, qd
  5. KARDEGIC [Concomitant]
     Dosage: 160 mg, qd
     Route: 048
  6. CORTANCYL [Concomitant]
     Dosage: 10 mg, UNK
     Route: 048
  7. SERETIDE [Concomitant]
     Route: 055

REACTIONS (1)
  - Allergic granulomatous angiitis [Not Recovered/Not Resolved]
